FAERS Safety Report 21775545 (Version 2)
Quarter: 2023Q1

REPORT INFORMATION
  Report Type: Spontaneous
  Country: CA (occurrence: CA)
  Receive Date: 20221226
  Receipt Date: 20230104
  Transmission Date: 20230418
  Serious: Yes (Hospitalization, Other)
  Sender: FDA-Public Use
  Company Number: CA-BAXTER-2022BAX031385

PATIENT
  Age: 48 Year
  Sex: Female

DRUGS (3)
  1. NOREPINEPHRINE BITARTRATE [Suspect]
     Active Substance: NOREPINEPHRINE BITARTRATE
     Indication: Hypotension
     Dosage: THROUGH THE COLLEAGUE PUMP.
     Route: 042
     Dates: start: 20210701
  2. PROPOFOL [Suspect]
     Active Substance: PROPOFOL
     Indication: Sedation
     Dosage: THROUGH THE COLLEAGUE PUMP
     Route: 042
     Dates: start: 20210701
  3. FENTANYL [Suspect]
     Active Substance: FENTANYL
     Indication: Sedation
     Dosage: THROUGH THE COLLEAGUE PUMP
     Route: 042
     Dates: start: 20210701

REACTIONS (11)
  - Pneumonia [Unknown]
  - Pulmonary embolism [Unknown]
  - Pneumothorax [Unknown]
  - Septic shock [Unknown]
  - Acute kidney injury [Unknown]
  - Cardiac arrest [Unknown]
  - Blood pressure decreased [Unknown]
  - Cardiac disorder [Unknown]
  - Device infusion issue [Unknown]
  - Device electrical finding [Unknown]
  - Device failure [Unknown]

NARRATIVE: CASE EVENT DATE: 20210829
